FAERS Safety Report 5120604-0 (Version None)
Quarter: 2006Q3

REPORT INFORMATION
  Report Type: 
  Country: None (occurrence: None)
  Receive Date: 20060928
  Receipt Date: 20060912
  Transmission Date: 20061208
  Serious: Yes (Other)
  Sender: FDA-Public Use
  Company Number: 2006114260

PATIENT
  Age: 86 Year
  Sex: Female

DRUGS (1)
  1. ATARAX [Suspect]
     Dates: start: 20060907

REACTIONS (5)
  - CHOKING [None]
  - DYSPHAGIA [None]
  - HYPERSOMNIA [None]
  - MALAISE [None]
  - MOTOR DYSFUNCTION [None]
